FAERS Safety Report 12223009 (Version 1)
Quarter: 2016Q1

REPORT INFORMATION
  Report Type: Spontaneous
  Country: US (occurrence: US)
  Receive Date: 20160330
  Receipt Date: 20160330
  Transmission Date: 20160526
  Serious: No
  Sender: FDA-Public Use
  Company Number: US-PERRIGO-15US012275

PATIENT
  Sex: Male
  Weight: 158 kg

DRUGS (1)
  1. ACETAMINOPHEN. [Suspect]
     Active Substance: ACETAMINOPHEN
     Indication: HEADACHE
     Dosage: 650 MG TO 1300 MG, POSSIBLY 7 TO 8 TABLETS TOTAL
     Route: 048
     Dates: start: 20151119, end: 20151120

REACTIONS (3)
  - Abdominal pain upper [Unknown]
  - Incorrect dose administered [Recovered/Resolved]
  - Underdose [Recovered/Resolved]

NARRATIVE: CASE EVENT DATE: 20151119
